FAERS Safety Report 5719516-0 (Version None)
Quarter: 2008Q2

REPORT INFORMATION
  Report Type: 
  Country: None (occurrence: None)
  Receive Date: 20080428
  Receipt Date: 20080204
  Transmission Date: 20081010
  Serious: No
  Sender: FDA-Public Use
  Company Number: A0707184A

PATIENT
  Age: 63 Year
  Sex: Female

DRUGS (32)
  1. AMERGE [Suspect]
     Indication: MIGRAINE
     Dosage: 2.5MG AS REQUIRED
     Route: 048
  2. IMITREX [Suspect]
     Indication: MIGRAINE
     Dosage: 20MG AS REQUIRED
     Route: 045
     Dates: start: 19970101
  3. IMITREX [Suspect]
     Route: 058
     Dates: start: 19930101, end: 19970101
  4. ELAVIL [Concomitant]
  5. PROZAC [Concomitant]
  6. LEVOTHROID [Concomitant]
  7. CLARITIN [Concomitant]
  8. FLONASE [Concomitant]
  9. SINGULAIR [Concomitant]
  10. B COMPLEX VITAMINS [Concomitant]
  11. IRON [Concomitant]
  12. THERAGRAN M [Concomitant]
  13. TYLENOL [Concomitant]
  14. AXERT [Concomitant]
  15. IMITREX [Concomitant]
  16. PERIDEX [Concomitant]
  17. UNKNOWN MEDICATION [Concomitant]
  18. PREVACID [Concomitant]
  19. ZANTAC [Concomitant]
  20. VISTARIL [Concomitant]
  21. TIGAN [Concomitant]
  22. REGLAN [Concomitant]
  23. MYLANTA [Concomitant]
  24. GELUSIL [Concomitant]
  25. SIMETHICON [Concomitant]
  26. SURFAK [Concomitant]
  27. COFNIL [Concomitant]
  28. HEMORRHOID MEDICATION [Concomitant]
  29. MIACALCIN [Concomitant]
  30. CALCIUM [Concomitant]
  31. MAGNESIUM [Concomitant]
  32. VITAMIN D [Concomitant]

REACTIONS (2)
  - DRUG INEFFECTIVE [None]
  - INJECTION SITE HAEMORRHAGE [None]
